FAERS Safety Report 8556765-0 (Version None)
Quarter: 2012Q3

REPORT INFORMATION
  Report Type: 
  Country: None (occurrence: None)
  Receive Date: 20120726
  Receipt Date: 20120726
  Transmission Date: 20120928
  Serious: Yes (Other)
  Sender: FDA-Public Use
  Company Number: None

PATIENT
  Sex: Female

DRUGS (1)
  1. HUMIRA [Suspect]
     Indication: CROHN'S DISEASE
     Dosage: 40MG, EVERY OTHER WEEK, SQ
     Dates: start: 20120512, end: 20120724

REACTIONS (5)
  - WOUND DRAINAGE [None]
  - BURNING SENSATION [None]
  - BLISTER [None]
  - ERYTHEMA [None]
  - PRURITUS [None]
